FAERS Safety Report 24435442 (Version 1)
Quarter: 2024Q4

REPORT INFORMATION
  Report Type: Spontaneous
  Country: FR (occurrence: FR)
  Receive Date: 20241015
  Receipt Date: 20241015
  Transmission Date: 20250114
  Serious: No
  Sender: ALKEM
  Company Number: FR-ALKEM LABORATORIES LIMITED-FR-ALKEM-2024-20023

PATIENT
  Age: 7 Decade
  Sex: Female

DRUGS (1)
  1. APREMILAST [Suspect]
     Active Substance: APREMILAST
     Indication: Benign familial pemphigus
     Dosage: 60 MILLIGRAM, QD (PER DAY)
     Route: 065

REACTIONS (2)
  - Diarrhoea [Unknown]
  - Therapy partial responder [Unknown]
